FAERS Safety Report 24982947 (Version 1)
Quarter: 2025Q1

REPORT INFORMATION
  Report Type: Spontaneous
  Country: JP (occurrence: JP)
  Receive Date: 20250218
  Receipt Date: 20250218
  Transmission Date: 20250409
  Serious: Yes (Other)
  Sender: MITSUBISHI TANABE PHARMA
  Company Number: JP-MTPC-MTPC2024-0025816

PATIENT
  Sex: Male

DRUGS (2)
  1. EDARAVONE [Suspect]
     Active Substance: EDARAVONE
     Indication: Amyotrophic lateral sclerosis
     Route: 048
  2. EDARAVONE [Suspect]
     Active Substance: EDARAVONE
     Indication: Amyotrophic lateral sclerosis
     Route: 048

REACTIONS (3)
  - Sepsis [Not Recovered/Not Resolved]
  - Prostatitis [Not Recovered/Not Resolved]
  - Pyrexia [Not Recovered/Not Resolved]
